FAERS Safety Report 9084786 (Version 1)
Quarter: 2013Q1

REPORT INFORMATION
  Report Type: Report from Study
  Country: US (occurrence: US)
  Receive Date: 20130131
  Receipt Date: 20130131
  Transmission Date: 20140127
  Serious: No
  Sender: FDA-Public Use
  Company Number: US-ABBOTT-12P-163-0993123-00

PATIENT
  Age: 46 Year
  Sex: Male

DRUGS (10)
  1. HUMIRA [Suspect]
     Indication: COLITIS ULCERATIVE
     Dosage: LOADING DOSE
     Dates: start: 20120911, end: 20120911
  2. HUMIRA [Suspect]
     Dosage: LOADING DOSE
     Dates: start: 20120925, end: 20120925
  3. HUMIRA [Suspect]
  4. PREDNISONE [Concomitant]
     Indication: COLITIS ULCERATIVE
     Dosage: DAILY
  5. IMURAN [Concomitant]
     Indication: COLITIS ULCERATIVE
     Dosage: DAILY
  6. COREG [Concomitant]
     Indication: HYPERTENSION
     Dosage: DAILY
  7. FENOFIBRATE [Concomitant]
     Indication: HIGH DENSITY LIPOPROTEIN DECREASED
     Dosage: DAILY
  8. MULTIVITAMINS [Concomitant]
     Indication: PRODUCT USED FOR UNKNOWN INDICATION
     Dosage: DAILY
  9. LOVASTATIN [Concomitant]
     Indication: BLOOD CHOLESTEROL ABNORMAL
  10. ALBUTEROL [Concomitant]
     Indication: ASTHMA

REACTIONS (1)
  - Injection site pain [Recovered/Resolved]
